FAERS Safety Report 5858732-4 (Version None)
Quarter: 2008Q3

REPORT INFORMATION
  Report Type: 
  Country: None (occurrence: None)
  Receive Date: 20080826
  Receipt Date: 20080819
  Transmission Date: 20090109
  Serious: Yes (Hospitalization)
  Sender: FDA-Public Use
  Company Number: US-BOEHRINGER INGELHEIM GMBH, GERMANY-2008-BP-11124BP

PATIENT
  Age: 87 Year
  Sex: Female

DRUGS (3)
  1. FLOMAX [Suspect]
     Indication: POLLAKIURIA
     Route: 048
     Dates: start: 20080707
  2. FLOMAX [Suspect]
     Indication: URINARY RETENTION
  3. PROTONIX [Suspect]
     Dates: start: 20080707, end: 20080716

REACTIONS (2)
  - HALLUCINATION [None]
  - VERTIGO [None]
